FAERS Safety Report 13065281 (Version 2)
Quarter: 2017Q1

REPORT INFORMATION
  Report Type: Report from Study
  Country: CA (occurrence: CA)
  Receive Date: 20161227
  Receipt Date: 20170217
  Transmission Date: 20170428
  Serious: Yes (Other)
  Sender: FDA-Public Use
  Company Number: CA-JNJFOC-20161216159

PATIENT
  Age: 17 Year
  Sex: Female
  Weight: 66 kg

DRUGS (6)
  1. REMICADE [Suspect]
     Active Substance: INFLIXIMAB
     Indication: COLITIS ULCERATIVE
     Route: 042
     Dates: start: 20161216
  2. BIPHENTIN [Concomitant]
     Active Substance: METHYLPHENIDATE
     Route: 048
     Dates: start: 20150801
  3. REMICADE [Suspect]
     Active Substance: INFLIXIMAB
     Indication: COLITIS ULCERATIVE
     Route: 042
     Dates: start: 20150831
  4. IMURAN [Concomitant]
     Active Substance: AZATHIOPRINE
     Route: 048
     Dates: start: 20150801
  5. REMICADE [Suspect]
     Active Substance: INFLIXIMAB
     Indication: COLITIS ULCERATIVE
     Route: 042
     Dates: start: 20150914
  6. MESALAZINE [Concomitant]
     Active Substance: MESALAMINE
     Route: 065

REACTIONS (3)
  - Clostridium difficile infection [Recovered/Resolved]
  - Colitis ulcerative [Unknown]
  - General physical health deterioration [Not Recovered/Not Resolved]

NARRATIVE: CASE EVENT DATE: 20161215
